FAERS Safety Report 19116965 (Version 1)
Quarter: 2021Q2

REPORT INFORMATION
  Report Type: Spontaneous
  Country: VN (occurrence: VN)
  Receive Date: 20210409
  Receipt Date: 20210409
  Transmission Date: 20210717
  Serious: Yes (Death)
  Sender: FDA-Public Use
  Company Number: VN-ASTRAZENECA-2021A210346

PATIENT
  Age: 26823 Day
  Sex: Female

DRUGS (1)
  1. TAGRISSO [Suspect]
     Active Substance: OSIMERTINIB
     Route: 048
     Dates: end: 20210312

REACTIONS (2)
  - Death [Fatal]
  - Fatigue [Unknown]

NARRATIVE: CASE EVENT DATE: 20210331
